FAERS Safety Report 7059534-6 (Version None)
Quarter: 2010Q4

REPORT INFORMATION
  Report Type: 
  Country: None (occurrence: None)
  Receive Date: 20101025
  Receipt Date: 20101011
  Transmission Date: 20110411
  Serious: Yes (Hospitalization, Other)
  Sender: FDA-Public Use
  Company Number: DE-CELGENEUS-062-50794-10101466

PATIENT

DRUGS (1)
  1. VIDAZA [Suspect]
     Route: 058

REACTIONS (5)
  - DEPRESSION [None]
  - FEBRILE NEUTROPENIA [None]
  - MYELODYSPLASTIC SYNDROME [None]
  - PANIC ATTACK [None]
  - PNEUMONIA FUNGAL [None]
